FAERS Safety Report 8172050-3 (Version None)
Quarter: 2012Q1

REPORT INFORMATION
  Report Type: 
  Country: None (occurrence: None)
  Receive Date: 20120228
  Receipt Date: 20120220
  Transmission Date: 20120608
  Serious: Yes (Hospitalization)
  Sender: FDA-Public Use
  Company Number: FR-ASTRAZENECA-2012SE12525

PATIENT
  Age: 29523 Day
  Sex: Female

DRUGS (3)
  1. TENORMIN [Suspect]
     Indication: ATRIAL FIBRILLATION
     Route: 048
  2. ATORVASTATIN [Concomitant]
  3. COUMADIN [Concomitant]

REACTIONS (1)
  - BRADYCARDIA [None]
